FAERS Safety Report 6167452-0 (Version None)
Quarter: 2009Q2

REPORT INFORMATION
  Report Type: 
  Country: None (occurrence: None)
  Receive Date: 20090424
  Receipt Date: 20090422
  Transmission Date: 20091009
  Serious: Yes (Death, Hospitalization, Other)
  Sender: FDA-Public Use
  Company Number: PHHY2008FR30829

PATIENT
  Sex: Female

DRUGS (10)
  1. ACLASTA [Suspect]
     Dosage: 5 MG, UNK
     Route: 042
     Dates: start: 20080301
  2. ISOPTIN [Concomitant]
     Dosage: 40 MG, TID
     Dates: start: 20060101
  3. VITAMINS WITH MINERALS [Concomitant]
     Dosage: UNK
     Dates: start: 20080301
  4. CORDARONE [Concomitant]
  5. ANTICOAGULANTS [Concomitant]
  6. PERINDOPRIL ERBUMINE [Concomitant]
     Dosage: 40 MG, QD
  7. POTASSIUM CHLORIDE [Concomitant]
  8. ALDALIX [Concomitant]
  9. NEXIUM [Concomitant]
  10. PLAVIX [Concomitant]

REACTIONS (38)
  - ANOREXIA [None]
  - ATRIAL FIBRILLATION [None]
  - ATRIAL FLUTTER [None]
  - BLOOD ALBUMIN DECREASED [None]
  - BLOOD CREATININE INCREASED [None]
  - BLOOD THYROID STIMULATING HORMONE INCREASED [None]
  - BRAIN NATRIURETIC PEPTIDE INCREASED [None]
  - C-REACTIVE PROTEIN INCREASED [None]
  - CLOSTRIDIAL INFECTION [None]
  - CREPITATIONS [None]
  - DEHYDRATION [None]
  - DEMENTIA [None]
  - DIARRHOEA [None]
  - ESCHERICHIA INFECTION [None]
  - GASTROENTERITIS [None]
  - GENERAL PHYSICAL HEALTH DETERIORATION [None]
  - HAEMOGLOBIN DECREASED [None]
  - HYPERKALAEMIA [None]
  - HYPOCALCAEMIA [None]
  - HYPONATRAEMIA [None]
  - HYPOTHERMIA [None]
  - HYPOVOLAEMIA [None]
  - INFLAMMATION [None]
  - LEFT VENTRICULAR HYPERTROPHY [None]
  - MITRAL VALVE INCOMPETENCE [None]
  - OEDEMA PERIPHERAL [None]
  - OVERDOSE [None]
  - PERIPHLEBITIS [None]
  - PLATELET COUNT INCREASED [None]
  - PULMONARY HYPERTENSION [None]
  - RENAL FAILURE ACUTE [None]
  - SINOATRIAL BLOCK [None]
  - SKIN GRAFT [None]
  - SKIN NECROSIS [None]
  - SYNCOPE [None]
  - URINARY TRACT INFECTION PSEUDOMONAL [None]
  - VOMITING [None]
  - WHITE BLOOD CELL COUNT INCREASED [None]
